FAERS Safety Report 10692840 (Version 1)
Quarter: 2015Q1

REPORT INFORMATION
  Report Type: Spontaneous
  Country: LB (occurrence: LB)
  Receive Date: 20150106
  Receipt Date: 20150106
  Transmission Date: 20150720
  Serious: Yes (Death, Other)
  Sender: FDA-Public Use
  Company Number: LB-SA-2014SA180553

PATIENT
  Age: 75 Year
  Sex: Male

DRUGS (1)
  1. JEVTANA [Suspect]
     Active Substance: CABAZITAXEL
     Indication: PROSTATE CANCER
     Route: 042
     Dates: start: 20141218, end: 20141218

REACTIONS (5)
  - Hypotension [Unknown]
  - Febrile neutropenia [Unknown]
  - Pyrexia [Recovered/Resolved]
  - Cardiac failure [Fatal]
  - Diarrhoea [Not Recovered/Not Resolved]

NARRATIVE: CASE EVENT DATE: 201412
